FAERS Safety Report 14834752 (Version 6)
Quarter: 2022Q3

REPORT INFORMATION
  Report Type: Spontaneous
  Country: CA (occurrence: CA)
  Receive Date: 20180501
  Receipt Date: 20220729
  Transmission Date: 20221027
  Serious: Yes (Congenital Anomaly, Other)
  Sender: FDA-Public Use
  Company Number: CA-ALLERGAN-1823190US

PATIENT
  Sex: Female
  Weight: 3.164 kg

DRUGS (31)
  1. URSODIOL [Suspect]
     Active Substance: URSODIOL
     Indication: Exposure during pregnancy
     Dosage: UNK
     Route: 064
  2. URSODIOL [Suspect]
     Active Substance: URSODIOL
     Indication: Maternal exposure timing unspecified
  3. DULOXETINE [Suspect]
     Active Substance: DULOXETINE
     Indication: Maternal exposure timing unspecified
     Dosage: 90 MG, QD
     Route: 064
  4. DULOXETINE [Suspect]
     Active Substance: DULOXETINE
     Dosage: UNK
     Route: 063
  5. DULOXETINE [Suspect]
     Active Substance: DULOXETINE
     Dosage: 90 MG, QD
     Route: 064
  6. DULOXETINE [Suspect]
     Active Substance: DULOXETINE
     Dosage: 90 MG, QD
     Route: 063
  7. METHYLPHENIDATE [Suspect]
     Active Substance: METHYLPHENIDATE
     Indication: Maternal exposure timing unspecified
     Dosage: 36 MG, UNKNOWN
     Route: 064
  8. METHYLPHENIDATE [Suspect]
     Active Substance: METHYLPHENIDATE
     Indication: Product used for unknown indication
     Dosage: 36 MG, UNKNOWN
     Route: 064
  9. METHYLPHENIDATE [Suspect]
     Active Substance: METHYLPHENIDATE
     Indication: Attention deficit hyperactivity disorder
     Dosage: 36 MG, UNKNOWN
     Route: 063
  10. METHYLPHENIDATE [Suspect]
     Active Substance: METHYLPHENIDATE
     Indication: Foetal exposure during pregnancy
  11. INSULIN NOS [Suspect]
     Active Substance: INSULIN NOS
     Indication: Maternal exposure timing unspecified
     Dosage: UNK
     Route: 064
  12. INSULIN NOS [Suspect]
     Active Substance: INSULIN NOS
     Indication: Foetal exposure during pregnancy
  13. LEVOTHYROXINE [Suspect]
     Active Substance: LEVOTHYROXINE
     Indication: Product used for unknown indication
     Dosage: UNK
     Route: 064
  14. LEVOTHYROXINE [Suspect]
     Active Substance: LEVOTHYROXINE
     Indication: Maternal exposure timing unspecified
     Dosage: UNK
     Route: 048
  15. LEVOTHYROXINE [Suspect]
     Active Substance: LEVOTHYROXINE
     Indication: Foetal exposure during pregnancy
  16. OMEPRAZOLE [Suspect]
     Active Substance: OMEPRAZOLE
     Indication: Product used for unknown indication
     Dosage: UNK
     Route: 064
  17. OMEPRAZOLE [Suspect]
     Active Substance: OMEPRAZOLE
     Indication: Maternal exposure timing unspecified
     Dosage: UNK
     Route: 048
  18. CYCLOBENZAPRINE [Suspect]
     Active Substance: CYCLOBENZAPRINE
     Indication: Product used for unknown indication
     Dosage: UNK
     Route: 064
  19. CYCLOBENZAPRINE [Suspect]
     Active Substance: CYCLOBENZAPRINE
     Indication: Maternal exposure timing unspecified
     Dosage: UNK
     Route: 048
  20. CYCLOBENZAPRINE [Suspect]
     Active Substance: CYCLOBENZAPRINE
     Indication: Foetal exposure during pregnancy
  21. FERROUS SULFATE [Suspect]
     Active Substance: FERROUS SULFATE
     Indication: Product used for unknown indication
     Route: 064
  22. FERROUS SULFATE [Suspect]
     Active Substance: FERROUS SULFATE
     Indication: Maternal exposure timing unspecified
     Route: 048
  23. FERROUS SULFATE [Suspect]
     Active Substance: FERROUS SULFATE
     Indication: Foetal exposure during pregnancy
  24. DOCUSATE SODIUM [Suspect]
     Active Substance: DOCUSATE SODIUM
     Indication: Maternal exposure timing unspecified
     Route: 064
  25. DOCUSATE SODIUM [Suspect]
     Active Substance: DOCUSATE SODIUM
     Dosage: UNK
     Route: 063
  26. DOCUSATE SODIUM [Suspect]
     Active Substance: DOCUSATE SODIUM
     Dosage: 90 MG, QD
     Route: 064
  27. DOMPERIDONE [Suspect]
     Active Substance: DOMPERIDONE
     Indication: Maternal exposure timing unspecified
     Dosage: 20 MG, UNKNOWN
     Route: 064
  28. DOMPERIDONE [Suspect]
     Active Substance: DOMPERIDONE
     Indication: Lactation disorder
     Dosage: 20 MG, UNKNOWN
     Route: 064
  29. DOMPERIDONE [Suspect]
     Active Substance: DOMPERIDONE
     Indication: Foetal exposure during pregnancy
     Dosage: UNK
     Route: 048
  30. FERROUS SULFATE ANHYDROUS [Suspect]
     Active Substance: FERROUS SULFATE ANHYDROUS
     Indication: Maternal exposure timing unspecified
     Route: 064
  31. FERROUS SULFATE ANHYDROUS [Suspect]
     Active Substance: FERROUS SULFATE ANHYDROUS
     Indication: Foetal exposure during pregnancy

REACTIONS (6)
  - Respiratory tract malformation [Unknown]
  - Foetal exposure during pregnancy [Unknown]
  - Lung cyst [Unknown]
  - Maternal exposure during breast feeding [Unknown]
  - Pneumonia [Unknown]
  - Somnolence [Unknown]
